FAERS Safety Report 8033815-1 (Version None)
Quarter: 2012Q1

REPORT INFORMATION
  Report Type: 
  Country: None (occurrence: None)
  Receive Date: 20120110
  Receipt Date: 20120103
  Transmission Date: 20120608
  Serious: Yes (Hospitalization, Other)
  Sender: FDA-Public Use
  Company Number: FR-ASTRAZENECA-2011SE77280

PATIENT
  Age: 30 Year
  Sex: Female

DRUGS (19)
  1. QUETIAPINE FUMARATE [Suspect]
     Route: 048
     Dates: start: 20111105, end: 20111108
  2. ACETAMINOPHEN [Concomitant]
     Dates: start: 20110919
  3. STABLON [Concomitant]
     Dates: start: 20110918
  4. QUETIAPINE FUMARATE [Suspect]
     Indication: BIPOLAR I DISORDER
     Route: 048
     Dates: start: 20111020, end: 20111104
  5. QUETIAPINE FUMARATE [Suspect]
     Route: 048
     Dates: start: 20111108, end: 20111115
  6. TRIMEPRAZINE TARTRATE [Suspect]
     Dates: start: 20111020
  7. LAMICTAL [Concomitant]
     Route: 048
     Dates: start: 20110918
  8. QUETIAPINE FUMARATE [Suspect]
     Route: 048
     Dates: start: 20111116, end: 20111122
  9. QUETIAPINE FUMARATE [Suspect]
     Route: 048
     Dates: start: 20111122, end: 20111206
  10. TERCIAN [Suspect]
     Route: 048
     Dates: start: 20111116
  11. RISPERDAL [Suspect]
     Indication: BIPOLAR I DISORDER
     Dates: start: 20110918, end: 20110921
  12. ZYPREXA [Suspect]
     Indication: BIPOLAR I DISORDER
     Dates: start: 20110920, end: 20111004
  13. NORFLOXACIN [Concomitant]
     Dates: start: 20111018, end: 20111021
  14. ABILIFY [Concomitant]
     Indication: BIPOLAR I DISORDER
  15. QUETIAPINE FUMARATE [Suspect]
     Route: 048
     Dates: start: 20111206, end: 20111214
  16. QUETIAPINE FUMARATE [Suspect]
     Route: 048
     Dates: start: 20111115, end: 20111116
  17. XANAX [Concomitant]
     Route: 048
     Dates: start: 20111011, end: 20111201
  18. QUETIAPINE FUMARATE [Suspect]
     Route: 048
     Dates: start: 20111104, end: 20111105
  19. DUPHALAC [Concomitant]
     Dates: start: 20111106

REACTIONS (1)
  - COLITIS ISCHAEMIC [None]
